FAERS Safety Report 25032655 (Version 1)
Quarter: 2025Q1

REPORT INFORMATION
  Report Type: Report from Study
  Country: US (occurrence: US)
  Receive Date: 20250303
  Receipt Date: 20250303
  Transmission Date: 20250408
  Serious: Yes (Hospitalization)
  Sender: SUNOVION
  Company Number: US-SMPA-2025SPA002396

PATIENT

DRUGS (18)
  1. ORGOVYX [Suspect]
     Active Substance: RELUGOLIX
     Indication: Prostate cancer
     Dosage: 120 MG, QD
     Route: 048
  2. ADVIL [Concomitant]
     Active Substance: IBUPROFEN
     Route: 065
  3. MELATONIN [Concomitant]
     Active Substance: MELATONIN
     Route: 065
  4. VITAMIN D3 [Concomitant]
     Active Substance: CHOLECALCIFEROL
     Route: 065
  5. UNSPECIFIED INGREDIENT [Concomitant]
     Active Substance: UNSPECIFIED INGREDIENT
     Route: 065
  6. ELIQUIS [Concomitant]
     Active Substance: APIXABAN
     Route: 065
  7. IVERMECTIN [Concomitant]
     Active Substance: IVERMECTIN
     Route: 065
  8. MAGNESIUM [Concomitant]
     Active Substance: MAGNESIUM
     Route: 065
  9. MEBENDAZOLE [Concomitant]
     Active Substance: MEBENDAZOLE
     Route: 065
  10. METFORMIN [Concomitant]
     Active Substance: METFORMIN HYDROCHLORIDE
     Route: 065
  11. ACETYLCYSTEINE [Concomitant]
     Active Substance: ACETYLCYSTEINE
     Route: 065
  12. QUERCETIN [Concomitant]
     Active Substance: QUERCETIN
     Route: 065
  13. VITAMIN C [Concomitant]
     Active Substance: ASCORBIC ACID
     Route: 065
  14. SELENIUM [Concomitant]
     Active Substance: SELENIUM
     Route: 065
  15. TADALAFIL [Concomitant]
     Active Substance: TADALAFIL
     Route: 065
  16. MINERALS [Concomitant]
     Active Substance: MINERALS
     Route: 065
  17. HERBALS\TURMERIC [Concomitant]
     Active Substance: HERBALS\TURMERIC
     Route: 065
  18. URSOLIC ACID [Concomitant]
     Active Substance: URSOLIC ACID
     Route: 065

REACTIONS (3)
  - Lethargy [Unknown]
  - Amnesia [Unknown]
  - Haemoglobin decreased [Unknown]
